FAERS Safety Report 13540892 (Version 1)
Quarter: 2017Q2

REPORT INFORMATION
  Report Type: Spontaneous
  Country: US (occurrence: US)
  Receive Date: 20170512
  Receipt Date: 20170512
  Transmission Date: 20170830
  Serious: No
  Sender: FDA-Public Use
  Company Number: US-TEIKOKU PHARMA USA-TPU2017-00171

PATIENT
  Sex: Male
  Weight: 63.11 kg

DRUGS (3)
  1. LIDOCAINE PATCH [Suspect]
     Active Substance: LIDOCAINE
     Indication: PROCEDURAL PAIN
     Dosage: 1 PATCH APPLIED TO THE LEFT HIP JOINT AT NIGHT FOR 12 HOURS, THEN OFF FO 12 HOURS
     Route: 061
     Dates: start: 2015
  2. OXYCODONE [Suspect]
     Active Substance: OXYCODONE
  3. METOPROLOL. [Concomitant]
     Active Substance: METOPROLOL
     Indication: HYPERTENSION
     Route: 048
     Dates: start: 2013

REACTIONS (1)
  - Hallucination [Unknown]
